FAERS Safety Report 5505022-5 (Version None)
Quarter: 2007Q4

REPORT INFORMATION
  Report Type: 
  Country: None (occurrence: None)
  Receive Date: 20071031
  Receipt Date: 20071031
  Transmission Date: 20080405
  Serious: Yes (Other)
  Sender: FDA-Public Use
  Company Number: None

PATIENT
  Age: 35 Year
  Sex: Male
  Weight: 97.5234 kg

DRUGS (1)
  1. VIOXX [Suspect]
     Indication: PROCEDURAL PAIN
     Dosage: 25 MG TWICE A DAY. TWO CAPSULES A DAY PO
     Route: 048
     Dates: start: 20020201, end: 20020531

REACTIONS (5)
  - CARDIAC VALVE DISEASE [None]
  - DISCOMFORT [None]
  - HEADACHE [None]
  - PAIN [None]
  - SURGERY [None]
